FAERS Safety Report 5395985-3 (Version None)
Quarter: 2007Q3

REPORT INFORMATION
  Report Type: 
  Country: None (occurrence: None)
  Receive Date: 20070718
  Receipt Date: 20070420
  Transmission Date: 20080115
  Serious: Yes (Hospitalization, Other)
  Sender: FDA-Public Use
  Company Number: 2006124658

PATIENT
  Sex: Female

DRUGS (3)
  1. CELEBREX [Suspect]
     Indication: ARTHRITIS
     Dosage: 400 MG (200 MG, 2 IN 1 D), ORAL
     Route: 048
     Dates: start: 20030402, end: 20030805
  2. CELEBREX [Suspect]
     Indication: PAIN MANAGEMENT
     Dosage: 400 MG (200 MG, 2 IN 1 D), ORAL
     Route: 048
     Dates: start: 20030402, end: 20030805
  3. VIOXX [Suspect]
     Dates: start: 20030805

REACTIONS (1)
  - MYOCARDIAL INFARCTION [None]
